FAERS Safety Report 16907687 (Version 5)
Quarter: 2020Q4

REPORT INFORMATION
  Report Type: Report from Study
  Country: DE (occurrence: DE)
  Receive Date: 20191011
  Receipt Date: 20201012
  Transmission Date: 20210113
  Serious: Yes (Hospitalization)
  Sender: FDA-Public Use
  Company Number: DE-ROCHE-2429892

PATIENT
  Age: 78 Year
  Sex: Male
  Weight: 72 kg

DRUGS (13)
  1. VEMURAFENIB. [Suspect]
     Active Substance: VEMURAFENIB
     Indication: METASTATIC MALIGNANT MELANOMA
     Dosage: ON DAY 1-28 OF A 28-DAY-CYCLE?DATE OF LAST DOSE PRIOR TO SAE: 10/SEP/2019
     Route: 048
     Dates: start: 20190523, end: 20190910
  2. COBIMETINIB. [Suspect]
     Active Substance: COBIMETINIB
     Dosage: ON DAY 1-21 OF A 28-DAY-CYCLE
     Route: 048
     Dates: start: 20190906, end: 20190911
  3. L-THYROXINE [Concomitant]
     Active Substance: LEVOTHYROXINE
     Dates: start: 20180101
  4. TORASEMID [Concomitant]
     Active Substance: TORSEMIDE
     Dates: start: 20190101
  5. IODIDE [Concomitant]
     Active Substance: IODINE
     Dates: start: 20190101
  6. CANDESARTAN. [Concomitant]
     Active Substance: CANDESARTAN
     Dates: start: 20190815
  7. LEVETIRACETAM. [Concomitant]
     Active Substance: LEVETIRACETAM
     Dates: start: 20190101
  8. COBIMETINIB. [Suspect]
     Active Substance: COBIMETINIB
     Indication: METASTATIC MALIGNANT MELANOMA
     Dosage: ON DAY 1-21 OF A 28-DAY-CYCLE?DATE OF LAST DOSE PRIOR TO SAE: 03/SEP2019
     Route: 048
     Dates: start: 20190523, end: 20190813
  9. COBIMETINIB. [Suspect]
     Active Substance: COBIMETINIB
     Indication: MALIGNANT MELANOMA
     Dosage: ON DAY 1-21 OF A 28-DAY-CYCLE
     Route: 048
     Dates: start: 20190822, end: 20190905
  10. VEMURAFENIB. [Suspect]
     Active Substance: VEMURAFENIB
     Route: 048
     Dates: start: 20190906, end: 20190911
  11. PREDNICARBATE. [Concomitant]
     Active Substance: PREDNICARBATE
     Dates: start: 20190602
  12. VEMURAFENIB. [Suspect]
     Active Substance: VEMURAFENIB
     Indication: MALIGNANT MELANOMA
     Route: 048
     Dates: start: 20190822, end: 20190905
  13. AMLODIPINE [Concomitant]
     Active Substance: AMLODIPINE BESYLATE
     Dates: start: 20190101

REACTIONS (1)
  - Pneumonitis [Recovered/Resolved]

NARRATIVE: CASE EVENT DATE: 20190717
